FAERS Safety Report 8789054 (Version 2)
Quarter: 2012Q4

REPORT INFORMATION
  Report Type: 
  Country: US (occurrence: US)
  Receive Date: 20120917
  Receipt Date: 20121022
  Transmission Date: 20130627
  Serious: Yes (Life-Threatening, Disabling)
  Sender: FDA-Public Use
  Company Number: US-009507513-1209USA003788

PATIENT
  Sex: Female
  Weight: 109.75 kg

DRUGS (1)
  1. NUVARING [Suspect]
     Indication: CONTRACEPTION
     Dosage: UNK, qm
     Route: 067
     Dates: start: 200906

REACTIONS (1)
  - Deep vein thrombosis [Recovering/Resolving]
